FAERS Safety Report 7381618-3 (Version None)
Quarter: 2011Q1

REPORT INFORMATION
  Report Type: 
  Country: None (occurrence: None)
  Receive Date: 20110329
  Receipt Date: 20101007
  Transmission Date: 20110831
  Serious: Yes (Hospitalization, Other)
  Sender: FDA-Public Use
  Company Number: US-BAYER-201016504NA

PATIENT
  Sex: Female
  Weight: 54.422 kg

DRUGS (3)
  1. YAZ [Suspect]
     Dosage: UNK
     Route: 048
     Dates: start: 20070101, end: 20080601
  2. NAPROXEN [Concomitant]
  3. YASMIN [Suspect]
     Route: 048
     Dates: start: 20070401, end: 20080401

REACTIONS (9)
  - GALLBLADDER CHOLESTEROLOSIS [None]
  - VOMITING [None]
  - PAIN [None]
  - ABDOMINAL PAIN [None]
  - CHOLECYSTITIS CHRONIC [None]
  - GASTROOESOPHAGEAL REFLUX DISEASE [None]
  - NAUSEA [None]
  - BILIARY DYSKINESIA [None]
  - GALLBLADDER DISORDER [None]
